FAERS Safety Report 8820587 (Version 2)
Quarter: 2012Q4

REPORT INFORMATION
  Report Type: 
  Country: NL (occurrence: NL)
  Receive Date: 20121002
  Receipt Date: 20121211
  Transmission Date: 20130627
  Serious: Yes (Hospitalization)
  Sender: FDA-Public Use
  Company Number: NL-PFIZER INC-2012240175

PATIENT
  Age: 65 Year
  Sex: Male
  Weight: 103.2 kg

DRUGS (16)
  1. GENOTROPIN KABIVIAL [Suspect]
     Indication: PANHYPOPITUITARISM
     Dosage: 0.3 mg, 7/wk
     Route: 058
     Dates: start: 19951020, end: 20030311
  2. GENOTROPIN KABIVIAL [Suspect]
     Dosage: UNK
     Dates: end: 2006
  3. LEVOTHYROXINE [Concomitant]
     Indication: THYROID DISORDER
     Dosage: 0.137 mg, 1x/day
     Dates: start: 19690101
  4. LEVOTHYROXINE [Concomitant]
     Indication: PRIMARY HYPOTHYROIDISM
  5. HYDROCORTISONE [Concomitant]
     Indication: ACTH DECREASED
     Dosage: 3 times a day (10-5-5mg)
     Dates: start: 19690101
  6. SUSTANON [Concomitant]
     Indication: LUTEINISING HORMONE DEFICIENCY
     Dosage: 250 mg, monthly
     Dates: start: 19690101
  7. SUSTANON [Concomitant]
     Indication: FOLLICLE-STIMULATING HORMONE DEFICIENCY
  8. SUSTANON [Concomitant]
     Indication: TESTICULAR HYPOGONADISM
  9. DESMOPRESSIN [Concomitant]
     Indication: ADH DECREASED
     Dosage: UNK
     Dates: start: 19780901
  10. RENITEC [Concomitant]
     Indication: ESSENTIAL HYPERTENSION
     Dosage: 40 mg, 1x/day
     Dates: start: 19890101
  11. ZOCOR ^MSD^ [Concomitant]
     Indication: PURE HYPERCHOLESTEROLAEMIA
     Dosage: 10 mg, 1x/day
     Dates: start: 19900101
  12. LOSEC [Concomitant]
     Indication: HERNIA
     Dosage: 20 mg, 1x/day
     Dates: start: 19930101
  13. DOXYCLINE ^KALBE FARMA^ [Concomitant]
     Indication: ACUTE UPPER RESPIRATORY TRACT INFECTION
     Dosage: UNK
     Dates: start: 19960304
  14. ACETYLCYSTEINE [Concomitant]
     Indication: ACUTE UPPER RESPIRATORY TRACT INFECTION
     Dosage: UNK
     Dates: start: 19960304
  15. RHINOCORT [Concomitant]
     Indication: ALLERGIC RHINITIS
     Dosage: UNK
     Dates: start: 19981013
  16. BISOPROLOL [Concomitant]
     Dosage: 2.5 mg, 1x/day

REACTIONS (1)
  - Adrenocortical insufficiency acute [Recovered/Resolved]
